FAERS Safety Report 25774334 (Version 2)
Quarter: 2025Q4

REPORT INFORMATION
  Report Type: Spontaneous
  Country: US (occurrence: US)
  Receive Date: 20250908
  Receipt Date: 20251023
  Transmission Date: 20260117
  Serious: No
  Sender: BRISTOL-MYERS SQUIBB COMPANY
  Company Number: US-BRISTOL-MYERS SQUIBB COMPANY-2025-123711

PATIENT
  Age: 81 Year
  Sex: Female

DRUGS (2)
  1. REVLIMID [Suspect]
     Active Substance: LENALIDOMIDE
     Indication: Plasma cell myeloma
     Dates: start: 202301
  2. REVLIMID [Suspect]
     Active Substance: LENALIDOMIDE
     Indication: Neoplasm malignant
     Dates: start: 202301

REACTIONS (2)
  - Constipation [Unknown]
  - Diarrhoea [Unknown]
